FAERS Safety Report 5922234-7 (Version None)
Quarter: 2008Q4

REPORT INFORMATION
  Report Type: 
  Country: None (occurrence: None)
  Receive Date: 20081017
  Receipt Date: 20081006
  Transmission Date: 20090506
  Serious: Yes (Death, Hospitalization)
  Sender: FDA-Public Use
  Company Number: SV-ROCHE-561447

PATIENT
  Sex: Female

DRUGS (12)
  1. MYCOPHENOLATE MOFETIL [Suspect]
     Indication: RENAL TRANSPLANT
     Route: 048
     Dates: start: 20080401, end: 20080422
  2. BELATACEPT [Suspect]
     Indication: RENAL TRANSPLANT
     Route: 042
     Dates: start: 20080401, end: 20080423
  3. THYMOGLOBULIN [Suspect]
     Indication: DRUG USE FOR UNKNOWN INDICATION
     Dosage: STARED ON DAY OF TRANSPLANTATION, CONTINUING FOR FOUR DAYS
     Route: 065
  4. CLORAZEPATE DIPOTASSIUM [Concomitant]
     Dates: start: 20080402, end: 20080410
  5. SEPTRIN [Concomitant]
     Dates: start: 20080403, end: 20080422
  6. OMEPRAZOLE [Concomitant]
     Dates: start: 20080403, end: 20080410
  7. AMOXICILLIN [Concomitant]
     Dosage: DRUG REPORTED AS: AMOXICILLIN + POTASSIUM CLAVULANATE
     Dates: start: 20080411, end: 20080420
  8. VALGANCICLOVIR HCL [Concomitant]
     Dosage: DRUG REPORTED AS: VALGANCICLOVIR HCL
     Dates: start: 20080411, end: 20080420
  9. ASPIRIN [Concomitant]
     Dosage: DRUG REPORTED AS: ACETYLSALICYLIC ACID
     Dates: start: 20080412, end: 20080420
  10. FERROUS SULFATE [Concomitant]
     Dates: start: 20080411, end: 20080422
  11. EPOGEN [Concomitant]
  12. ACETYLCYSTEINE [Concomitant]
     Dates: start: 20080403, end: 20080406

REACTIONS (4)
  - INTERSTITIAL LUNG DISEASE [None]
  - MULTI-ORGAN FAILURE [None]
  - PYREXIA [None]
  - RESPIRATORY DISTRESS [None]
